FAERS Safety Report 10088516 (Version 1)
Quarter: 2014Q2

REPORT INFORMATION
  Report Type: Spontaneous
  Country: US (occurrence: US)
  Receive Date: 20140421
  Receipt Date: 20140421
  Transmission Date: 20141212
  Serious: No
  Sender: FDA-Public Use
  Company Number: US-BIOGENIDEC-2014BI032041

PATIENT
  Sex: Female

DRUGS (5)
  1. TECFIDERA [Suspect]
     Indication: MULTIPLE SCLEROSIS
     Route: 048
     Dates: start: 201403
  2. CYMBALTA [Concomitant]
  3. HYDROCHLOROTHIAZIDE [Concomitant]
  4. KLONIPIN [Concomitant]
  5. PLAQUENIL [Concomitant]

REACTIONS (3)
  - Sinusitis [Unknown]
  - Flushing [Unknown]
  - Diarrhoea [Unknown]
